FAERS Safety Report 8058573-6 (Version None)
Quarter: 2012Q1

REPORT INFORMATION
  Report Type: 
  Country: None (occurrence: None)
  Receive Date: 20120120
  Receipt Date: 20120118
  Transmission Date: 20120608
  Serious: Yes (Hospitalization, Other)
  Sender: FDA-Public Use
  Company Number: SE-PFIZER INC-2012001675

PATIENT
  Age: 32 Year
  Sex: Female

DRUGS (4)
  1. METHERGINE [Suspect]
     Dosage: 0.2 MG, UNK
     Route: 042
     Dates: start: 20100205, end: 20100205
  2. SYNTOCINON [Suspect]
     Dosage: 35 IU
     Route: 042
     Dates: start: 20100205, end: 20100205
  3. CYTOTEC [Suspect]
     Indication: OFF LABEL USE
  4. CYTOTEC [Suspect]
     Indication: POSTPARTUM HAEMORRHAGE
     Dosage: 0.6 MG, SINGLE
     Route: 060
     Dates: start: 20100205, end: 20100205

REACTIONS (10)
  - AKATHISIA [None]
  - HALLUCINATION [None]
  - RENAL FAILURE ACUTE [None]
  - DEPRESSED LEVEL OF CONSCIOUSNESS [None]
  - AGITATION [None]
  - PALLOR [None]
  - HYPERPYREXIA [None]
  - VISUAL IMPAIRMENT [None]
  - CHILLS [None]
  - RHABDOMYOLYSIS [None]
